FAERS Safety Report 7678780-1 (Version None)
Quarter: 2011Q3

REPORT INFORMATION
  Report Type: 
  Country: None (occurrence: None)
  Receive Date: 20110811
  Receipt Date: 20110803
  Transmission Date: 20111222
  Serious: Yes (Other)
  Sender: FDA-Public Use
  Company Number: US-RB-029633-11

PATIENT
  Age: 46 Year
  Sex: Female

DRUGS (3)
  1. SUBOXONE [Suspect]
     Dosage: SUBOXONE SUBLINGUAL FILM, 4-8 MG DAILY
     Route: 060
     Dates: start: 20110101
  2. SUBOXONE [Suspect]
     Indication: DRUG DEPENDENCE
     Dosage: SUBOXONE SUBLINGUAL FILM
     Route: 065
     Dates: start: 20100101, end: 20110101
  3. SUBUTEX [Suspect]
     Indication: DRUG DEPENDENCE
     Dosage: DOSAGE 4-8 MG DAILY.
     Route: 060
     Dates: start: 20110101, end: 20110101

REACTIONS (6)
  - ASTHENIA [None]
  - MATERNAL EXPOSURE DURING PREGNANCY [None]
  - ABORTION SPONTANEOUS [None]
  - SUBSTANCE ABUSE [None]
  - INFLUENZA [None]
  - VAGINAL HAEMORRHAGE [None]
